FAERS Safety Report 5711219-1 (Version None)
Quarter: 2008Q2

REPORT INFORMATION
  Report Type: 
  Country: None (occurrence: None)
  Receive Date: 20080421
  Receipt Date: 20080410
  Transmission Date: 20081010
  Serious: Yes (Other)
  Sender: FDA-Public Use
  Company Number: US-JNJFOC-20080403266

PATIENT
  Sex: Female
  Weight: 82.56 kg

DRUGS (4)
  1. REMICADE [Suspect]
  2. REMICADE [Suspect]
     Indication: PSORIATIC ARTHROPATHY
  3. DEMEROL [Concomitant]
  4. PREDNISONE [Concomitant]

REACTIONS (7)
  - DYSPNOEA [None]
  - FLUSHING [None]
  - HYPERTENSION [None]
  - INFUSION RELATED REACTION [None]
  - MUSCULOSKELETAL STIFFNESS [None]
  - NAUSEA [None]
  - THROAT TIGHTNESS [None]
